FAERS Safety Report 8791403 (Version 2)
Quarter: 2012Q4

REPORT INFORMATION
  Report Type: Spontaneous
  Country: US (occurrence: None)
  Receive Date: 20120912
  Receipt Date: 20121012
  Transmission Date: 20130627
  Serious: Yes (Other)
  Sender: FDA-Public Use
  Company Number: 2012P1056087

PATIENT
  Age: 71 Year
  Sex: Male
  Weight: 75.75 kg

DRUGS (4)
  1. FLUOROURACIL [Suspect]
     Indication: CANCER
     Route: 061
     Dates: start: 20120727, end: 20120809
  2. ASPIRIN [Concomitant]
  3. INDAPAMIDE [Concomitant]
  4. LISINOPRIL [Concomitant]

REACTIONS (5)
  - Burns third degree [None]
  - Application site pain [None]
  - Blister [None]
  - Scab [None]
  - Penile exfoliation [None]
